FAERS Safety Report 11359576 (Version 1)
Quarter: 2015Q3

REPORT INFORMATION
  Report Type: Spontaneous
  Country: US (occurrence: None)
  Receive Date: 20150807
  Receipt Date: 20150807
  Transmission Date: 20151125
  Serious: Yes (Hospitalization)
  Sender: FDA-Public Use
  Company Number: None

PATIENT
  Age: 45 Year
  Sex: Male
  Weight: 114 kg

DRUGS (11)
  1. LANTUS [Concomitant]
     Active Substance: INSULIN GLARGINE
  2. SYMBICORT [Concomitant]
     Active Substance: BUDESONIDE\FORMOTEROL FUMARATE DIHYDRATE
  3. NILOTINIB [Suspect]
     Active Substance: NILOTINIB
     Indication: CHRONIC MYELOID LEUKAEMIA
     Route: 048
     Dates: start: 20150318, end: 20150322
  4. FLUTICASONE [Concomitant]
     Active Substance: FLUTICASONE\FLUTICASONE PROPIONATE
  5. POTASSIUM CHLORIDE. [Concomitant]
     Active Substance: POTASSIUM CHLORIDE
  6. FUROSEMIDE. [Concomitant]
     Active Substance: FUROSEMIDE
  7. VITAMIN D3 [Concomitant]
     Active Substance: CHOLECALCIFEROL
  8. VALSARTAN. [Concomitant]
     Active Substance: VALSARTAN
  9. HUMALOG [Concomitant]
     Active Substance: INSULIN LISPRO
  10. PRAVASTATIN [Concomitant]
     Active Substance: PRAVASTATIN\PRAVASTATIN SODIUM
  11. ALBUTEROL INHALER [Concomitant]
     Active Substance: ALBUTEROL

REACTIONS (1)
  - Pancreatitis acute [None]

NARRATIVE: CASE EVENT DATE: 20150322
